FAERS Safety Report 12246058 (Version 1)
Quarter: 2016Q2

REPORT INFORMATION
  Report Type: Spontaneous
  Country: US (occurrence: US)
  Receive Date: 20160407
  Receipt Date: 20160407
  Transmission Date: 20160815
  Serious: No
  Sender: FDA-Public Use
  Company Number: US-BAYER-2016-065314

PATIENT
  Age: 44 Year
  Sex: Female

DRUGS (1)
  1. BETASERON [Suspect]
     Active Substance: INTERFERON BETA-1B
     Indication: MULTIPLE SCLEROSIS
     Dosage: 0.187 MG, QOD
     Route: 058

REACTIONS (8)
  - Nervousness [None]
  - Influenza like illness [None]
  - Insomnia [None]
  - Hyperhidrosis [None]
  - Asthenia [None]
  - Malaise [None]
  - Sleep disorder [None]
  - Feeling abnormal [None]

NARRATIVE: CASE EVENT DATE: 20160401
